FAERS Safety Report 10517426 (Version 2)
Quarter: 2014Q4

REPORT INFORMATION
  Report Type: Spontaneous
  Country: AU (occurrence: AU)
  Receive Date: 20141014
  Receipt Date: 20141023
  Transmission Date: 20150528
  Serious: Yes (Death)
  Sender: FDA-Public Use
  Company Number: AU-MYLANLABS-2014M1007183

PATIENT

DRUGS (1)
  1. INDOMETHACIN AG, INDOMETHACIN AGILA, INDOMETHACIN CH [Suspect]
     Active Substance: INDOMETHACIN
     Indication: PATENT DUCTUS ARTERIOSUS
     Dosage: 0.2 MG/KG, UNK
     Route: 042
     Dates: start: 20140902, end: 20140916

REACTIONS (1)
  - Death [Fatal]

NARRATIVE: CASE EVENT DATE: 20140926
